FAERS Safety Report 8515144-2 (Version None)
Quarter: 2012Q3

REPORT INFORMATION
  Report Type: 
  Country: None (occurrence: None)
  Receive Date: 20120717
  Receipt Date: 20100701
  Transmission Date: 20120928
  Serious: Yes (Hospitalization)
  Sender: FDA-Public Use
  Company Number: US-GLAXOSMITHKLINE-A0868750A

PATIENT
  Age: 57 Year
  Sex: Male

DRUGS (1)
  1. AVANDIA [Suspect]
     Indication: DIABETES MELLITUS
     Route: 048
     Dates: start: 19990501, end: 20000101

REACTIONS (2)
  - CARDIAC FAILURE CONGESTIVE [None]
  - ARTERIOSCLEROSIS CORONARY ARTERY [None]
